FAERS Safety Report 6436443-4 (Version None)
Quarter: 2009Q4

REPORT INFORMATION
  Report Type: 
  Country: None (occurrence: None)
  Receive Date: 20091110
  Receipt Date: 20071003
  Transmission Date: 20100525
  Serious: No
  Sender: FDA-Public Use
  Company Number: AEUSA200700215

PATIENT
  Age: 77 Year
  Sex: Female
  Weight: 58.9676 kg

DRUGS (8)
  1. GAMUNEX [Suspect]
     Indication: IMMUNOGLOBULINS DECREASED
     Dosage: 20 GM;Q6W;IV
     Route: 042
     Dates: start: 20050101
  2. ATENOLOL [Concomitant]
  3. PROTONIX /01263202/ [Concomitant]
  4. DYAZIDE [Concomitant]
  5. ASPIRIN [Concomitant]
  6. CALCIUM [Concomitant]
  7. FOLIC ACID [Concomitant]
  8. ASCORBIC ACID [Concomitant]

REACTIONS (1)
  - BREAST TENDERNESS [None]
